FAERS Safety Report 8474458-5 (Version None)
Quarter: 2012Q2

REPORT INFORMATION
  Report Type: 
  Country: None (occurrence: None)
  Receive Date: 20120628
  Receipt Date: 20120625
  Transmission Date: 20120825
  Serious: Yes (Other)
  Sender: FDA-Public Use
  Company Number: PHHY2011CR43383

PATIENT
  Age: 54 Year
  Sex: Female

DRUGS (2)
  1. CALCIUM [Concomitant]
     Dosage: 1 DF, QD
  2. ZOLEDRONOC ACID [Suspect]
     Indication: OSTEOPENIA
     Dosage: 5 MG VIAL
     Route: 042
     Dates: start: 20110510

REACTIONS (10)
  - ARTHRITIS [None]
  - ARTHRALGIA [None]
  - GAIT DISTURBANCE [None]
  - JOINT SWELLING [None]
  - DYSPNOEA [None]
  - POLYSEROSITIS [None]
  - CHEST DISCOMFORT [None]
  - JOINT RANGE OF MOTION DECREASED [None]
  - PAIN [None]
  - PYREXIA [None]
